FAERS Safety Report 13547676 (Version 1)
Quarter: 2017Q2

REPORT INFORMATION
  Report Type: Spontaneous
  Country: BR (occurrence: BR)
  Receive Date: 20170515
  Receipt Date: 20170515
  Transmission Date: 20170830
  Serious: Yes (Death)
  Sender: FDA-Public Use
  Company Number: PHHY2017BR067133

PATIENT
  Age: 72 Year

DRUGS (3)
  1. LEUCOVORIN. [Suspect]
     Active Substance: LEUCOVORIN
     Indication: COLORECTAL CANCER STAGE III
     Dosage: 20 MG/M2, PER WEEK FOR 6 CONSECUTIVE WEEKS
     Route: 040
  2. OXALIPLATIN. [Suspect]
     Active Substance: OXALIPLATIN
     Indication: COLORECTAL CANCER STAGE III
     Dosage: 85 MG/M2, IN A 2-HOUR INFUSION
     Route: 042
  3. 5-FLUOROURACIL [Suspect]
     Active Substance: FLUOROURACIL
     Indication: COLORECTAL CANCER STAGE III
     Dosage: 500 MG/M2, PER WEEK FOR 6 CONSECUTIVE WEEKS
     Route: 040

REACTIONS (3)
  - Sepsis [Fatal]
  - Acidosis [Fatal]
  - Diarrhoea [Fatal]
